FAERS Safety Report 17941215 (Version 1)
Quarter: 2020Q2

REPORT INFORMATION
  Report Type: Spontaneous
  Country: US (occurrence: US)
  Receive Date: 20200624
  Receipt Date: 20200624
  Transmission Date: 20200714
  Serious: Yes (Hospitalization)
  Sender: FDA-Public Use
  Company Number: None

PATIENT
  Age: 13 Year
  Sex: Male
  Weight: 38.25 kg

DRUGS (1)
  1. LEVETIRACETAM. [Suspect]
     Active Substance: LEVETIRACETAM
     Indication: SEIZURE
     Dosage: ?          QUANTITY:1 TEASPOON(S);?
     Route: 048
     Dates: start: 20180902, end: 20180905

REACTIONS (9)
  - Movement disorder [None]
  - Hyperhidrosis [None]
  - Fall [None]
  - Dysphoria [None]
  - Anxiety [None]
  - Feeling hot [None]
  - Fear [None]
  - Abnormal behaviour [None]
  - Crying [None]

NARRATIVE: CASE EVENT DATE: 20180905
